FAERS Safety Report 6556374-9 (Version None)
Quarter: 2010Q1

REPORT INFORMATION
  Report Type: 
  Country: None (occurrence: None)
  Receive Date: 20100128
  Receipt Date: 20100120
  Transmission Date: 20100710
  Serious: Yes (Other)
  Sender: FDA-Public Use
  Company Number: GXKR2010PL00995

PATIENT
  Age: 6 Year
  Sex: Female

DRUGS (1)
  1. AZITHROMYCIN [Suspect]
     Indication: OTITIS MEDIA ACUTE
     Dosage: 10 MG/KG, QD
     Route: 048

REACTIONS (6)
  - CONFUSIONAL STATE [None]
  - DELIRIUM [None]
  - DISORIENTATION [None]
  - HALLUCINATION [None]
  - INCOHERENT [None]
  - SOMNOLENCE [None]
